FAERS Safety Report 10188443 (Version 1)
Quarter: 2014Q2

REPORT INFORMATION
  Report Type: Spontaneous
  Country: US (occurrence: None)
  Receive Date: 20140521
  Receipt Date: 20140521
  Transmission Date: 20141212
  Serious: Yes (Hospitalization, Disabling, Other)
  Sender: FDA-Public Use
  Company Number: None

PATIENT
  Age: 37 Year
  Sex: Female
  Weight: 72.58 kg

DRUGS (2)
  1. IODINE CONTRAST MEDIA [Suspect]
     Indication: COMPUTERISED TOMOGRAM
     Dates: start: 20140404
  2. IODINE CONTRAST MEDIA [Suspect]
     Indication: CHEST PAIN
     Dates: start: 20140404

REACTIONS (3)
  - Flushing [None]
  - Burning sensation [None]
  - Musculoskeletal discomfort [None]
